FAERS Safety Report 8111308-0 (Version None)
Quarter: 2012Q1

REPORT INFORMATION
  Report Type: 
  Country: None (occurrence: None)
  Receive Date: 20120203
  Receipt Date: 20110822
  Transmission Date: 20120608
  Serious: Yes (Other)
  Sender: FDA-Public Use
  Company Number: US-GLAXOSMITHKLINE-A0941859A

PATIENT
  Age: 34 Year
  Sex: Female

DRUGS (2)
  1. LAMOTRIGINE [Suspect]
     Indication: CONVULSION
     Dosage: 300MG PER DAY
     Route: 048
     Dates: end: 20100704
  2. TYLENOL W/ CODEINE NO. 3 [Concomitant]

REACTIONS (2)
  - CONVULSION [None]
  - MIGRAINE [None]
